FAERS Safety Report 5178017-1 (Version None)
Quarter: 2006Q4

REPORT INFORMATION
  Report Type: 
  Country: None (occurrence: None)
  Receive Date: 20061218
  Receipt Date: 20060801
  Transmission Date: 20070319
  Serious: No
  Sender: FDA-Public Use
  Company Number: US-AMGEN-KDL188544

PATIENT
  Sex: Female

DRUGS (3)
  1. ENBREL [Suspect]
     Indication: RHEUMATOID ARTHRITIS
     Route: 058
     Dates: start: 20010701
  2. ENBREL [Suspect]
     Dates: start: 20050926
  3. PLAQUENIL [Concomitant]

REACTIONS (7)
  - BLOOD PRESSURE [None]
  - CONDITION AGGRAVATED [None]
  - HEADACHE [None]
  - INJECTION SITE BRUISING [None]
  - INJECTION SITE PAIN [None]
  - LOCALISED INFECTION [None]
  - PYREXIA [None]
